FAERS Safety Report 16122753 (Version 1)
Quarter: 2019Q1

REPORT INFORMATION
  Report Type: Spontaneous
  Country: US (occurrence: US)
  Receive Date: 20190327
  Receipt Date: 20190327
  Transmission Date: 20190418
  Serious: No
  Sender: FDA-Public Use
  Company Number: US-BAYER-2019-052365

PATIENT
  Age: 5 Year
  Sex: Female
  Weight: 27 kg

DRUGS (2)
  1. MIRALAX [Suspect]
     Active Substance: POLYETHYLENE GLYCOL 3350
     Indication: CONSTIPATION
     Dosage: 1/2 TEASPOON PER DAY
     Route: 048
     Dates: start: 2016
  2. MULTIVITAMIN + MINERAL [Concomitant]
     Active Substance: MINERALS\VITAMINS

REACTIONS (5)
  - Off label use [Unknown]
  - Product use in unapproved indication [Unknown]
  - Off label use [None]
  - Incorrect dose administered [None]
  - Product use issue [None]
